FAERS Safety Report 7391042-5 (Version None)
Quarter: 2011Q1

REPORT INFORMATION
  Report Type: 
  Country: None (occurrence: None)
  Receive Date: 20110324
  Receipt Date: 20110317
  Transmission Date: 20110831
  Serious: Yes (Hospitalization)
  Sender: FDA-Public Use
  Company Number: 2011MA002561

PATIENT
  Age: 48 Year
  Sex: Female

DRUGS (1)
  1. GABAPENTIN [Suspect]
     Indication: NEUROPATHY PERIPHERAL
     Dosage: 1200 MG; BID; PO
     Route: 048
     Dates: start: 20110201

REACTIONS (3)
  - BLISTER [None]
  - PRODUCT SUBSTITUTION ISSUE [None]
  - OEDEMA PERIPHERAL [None]
